FAERS Safety Report 6880824-1 (Version None)
Quarter: 2010Q3

REPORT INFORMATION
  Report Type: 
  Country: None (occurrence: None)
  Receive Date: 20100728
  Receipt Date: 20100719
  Transmission Date: 20110219
  Serious: Yes (Other)
  Sender: FDA-Public Use
  Company Number: US-NOVOPROD-307709

PATIENT
  Age: 50 Year
  Sex: Male
  Weight: 117.91 kg

DRUGS (11)
  1. VICTOZA [Suspect]
     Indication: TYPE 2 DIABETES MELLITUS
     Dosage: .6 MG, QD
     Route: 058
     Dates: start: 20100218, end: 20100224
  2. VICTOZA [Suspect]
     Dosage: 1.2 MG, QD
     Dates: start: 20100225, end: 20100303
  3. VICTOZA [Suspect]
     Dosage: 1.8 MG, QD
     Dates: start: 20100304, end: 20100422
  4. AMARYL [Concomitant]
     Indication: PRODUCT USED FOR UNKNOWN INDICATION
  5. TOPROL-XL [Concomitant]
     Indication: PRODUCT USED FOR UNKNOWN INDICATION
  6. GLUCOPHAGE [Concomitant]
     Indication: TYPE 2 DIABETES MELLITUS
  7. FISH OIL [Concomitant]
     Indication: PRODUCT USED FOR UNKNOWN INDICATION
  8. CRESTOR [Concomitant]
     Indication: PRODUCT USED FOR UNKNOWN INDICATION
  9. LISINOPRIL [Concomitant]
     Indication: PRODUCT USED FOR UNKNOWN INDICATION
  10. LASIX [Concomitant]
     Indication: PRODUCT USED FOR UNKNOWN INDICATION
  11. ASPIRIN [Concomitant]
     Indication: PRODUCT USED FOR UNKNOWN INDICATION

REACTIONS (1)
  - PANCREATITIS ACUTE [None]
